FAERS Safety Report 24910057 (Version 1)
Quarter: 2025Q1

REPORT INFORMATION
  Report Type: Report from Study
  Country: SA (occurrence: SA)
  Receive Date: 20250131
  Receipt Date: 20250131
  Transmission Date: 20250409
  Serious: Yes (Hospitalization, Other)
  Sender: ALEXION PHARMACEUTICALS
  Company Number: SA-AstraZeneca-CH-00793555A

PATIENT
  Age: 24 Year

DRUGS (1)
  1. FASENRA [Suspect]
     Active Substance: BENRALIZUMAB
     Indication: Asthma
     Dosage: 30 MILLIGRAM, Q4W

REACTIONS (5)
  - Ovarian cystectomy [Recovered/Resolved]
  - Abscess [Unknown]
  - Appendix disorder [Unknown]
  - Crohn^s disease [Unknown]
  - Product dose omission issue [Unknown]
